FAERS Safety Report 4882267-9 (Version None)
Quarter: 2006Q1

REPORT INFORMATION
  Report Type: 
  Country: None (occurrence: None)
  Receive Date: 20060117
  Receipt Date: 20060103
  Transmission Date: 20060701
  Serious: Yes (Hospitalization, Other)
  Sender: FDA-Public Use
  Company Number: US-MERCK-0601USA00459

PATIENT
  Age: 72 Year
  Sex: Male
  Weight: 114 kg

DRUGS (11)
  1. VIOXX [Suspect]
     Indication: ARTHRITIS
     Route: 048
     Dates: start: 19990101, end: 20000101
  2. VIOXX [Suspect]
     Route: 048
  3. GLUCOSAMINE [Concomitant]
     Route: 065
  4. HYDROCHLOROTHIAZIDE [Concomitant]
     Route: 065
  5. TESTOSTERONE [Concomitant]
     Route: 065
  6. ZYLOPRIM [Concomitant]
     Route: 065
  7. POTASSIUM CHLORIDE [Concomitant]
     Route: 065
  8. PYRIDOXINE [Concomitant]
     Route: 065
  9. ASCORBIC ACID [Concomitant]
     Route: 065
  10. CYANOCOBALAMIN [Concomitant]
     Route: 065
  11. PROZAC [Concomitant]
     Route: 065

REACTIONS (23)
  - BACK PAIN [None]
  - BLOOD PRESSURE INCREASED [None]
  - CAROTID ARTERY ATHEROMA [None]
  - CAROTID ARTERY DISEASE [None]
  - CAROTID ARTERY STENOSIS [None]
  - CEREBRAL INFARCTION [None]
  - CEREBRAL ISCHAEMIA [None]
  - CEREBROVASCULAR ACCIDENT [None]
  - DEPRESSION [None]
  - DIABETES MELLITUS NON-INSULIN-DEPENDENT [None]
  - DIASTOLIC DYSFUNCTION [None]
  - DYSLIPIDAEMIA [None]
  - HEMIPARESIS [None]
  - HYPERTENSION [None]
  - INTERVERTEBRAL DISC DEGENERATION [None]
  - NASAL CONGESTION [None]
  - NASAL SEPTUM DISORDER [None]
  - NERVE COMPRESSION [None]
  - OBSTRUCTION [None]
  - OSTEOARTHRITIS [None]
  - SPINAL COLUMN STENOSIS [None]
  - TRANSIENT ISCHAEMIC ATTACK [None]
  - VENTRICULAR HYPERTROPHY [None]
